FAERS Safety Report 18791303 (Version 50)
Quarter: 2025Q2

REPORT INFORMATION
  Report Type: Report from Study
  Country: US (occurrence: US)
  Receive Date: 20210126
  Receipt Date: 20250527
  Transmission Date: 20250717
  Serious: Yes (Other)
  Sender: TAKEDA
  Company Number: US-TAKEDA-2021TUS003108

PATIENT
  Age: 62 Year
  Sex: Female
  Weight: 91 kg

DRUGS (92)
  1. HUMAN IMMUNOGLOBULIN G [Suspect]
     Active Substance: HUMAN IMMUNOGLOBULIN G
     Indication: Immunodeficiency common variable
     Dosage: 40 GRAM, Q4WEEKS
     Dates: start: 20201230
  2. HUMAN IMMUNOGLOBULIN G [Suspect]
     Active Substance: HUMAN IMMUNOGLOBULIN G
     Indication: Immune system disorder
  3. HUMAN IMMUNOGLOBULIN G [Suspect]
     Active Substance: HUMAN IMMUNOGLOBULIN G
     Indication: Hypergammaglobulinaemia
  4. CUVITRU [Suspect]
     Active Substance: HUMAN IMMUNOGLOBULIN G
     Indication: Immunodeficiency common variable
     Dosage: 35 GRAM, Q2WEEKS
     Dates: start: 20180106
  5. CUVITRU [Suspect]
     Active Substance: HUMAN IMMUNOGLOBULIN G
     Dosage: 40 GRAM, Q2WEEKS
  6. HYQVIA [Suspect]
     Active Substance: HUMAN IMMUNOGLOBULIN G\HYALURONIDASE (HUMAN RECOMBINANT)
     Indication: Hypergammaglobulinaemia
     Dosage: 40 GRAM, Q4WEEKS
     Dates: start: 20250109
  7. HYQVIA [Suspect]
     Active Substance: HUMAN IMMUNOGLOBULIN G\HYALURONIDASE (HUMAN RECOMBINANT)
     Indication: Immune system disorder
  8. INFLUENZA VIRUS VACCINE [Suspect]
     Active Substance: INFLUENZA VIRUS VACCINE
     Indication: Product used for unknown indication
  9. LAMOTRIGINE [Suspect]
     Active Substance: LAMOTRIGINE
     Indication: Product used for unknown indication
  10. BOTOX [Suspect]
     Active Substance: ONABOTULINUMTOXINA
     Indication: Product used for unknown indication
  11. ACETAMINOPHEN [Concomitant]
     Active Substance: ACETAMINOPHEN
  12. EPINEPHRINE [Concomitant]
     Active Substance: EPINEPHRINE
  13. ZYRTEC [Concomitant]
     Active Substance: CETIRIZINE HYDROCHLORIDE
  14. CYMBALTA [Concomitant]
     Active Substance: DULOXETINE HYDROCHLORIDE
  15. Glucosamine + chondroitin + msm [Concomitant]
  16. MIRALAX [Concomitant]
     Active Substance: POLYETHYLENE GLYCOL 3350
  17. TRAZODONE HCL [Concomitant]
     Active Substance: TRAZODONE HYDROCHLORIDE
  18. TIZANIDINE HYDROCHLORIDE [Concomitant]
     Active Substance: TIZANIDINE HYDROCHLORIDE
  19. FIORICET [Concomitant]
     Active Substance: ACETAMINOPHEN\BUTALBITAL\CAFFEINE
  20. SODIUM CHLORIDE [Concomitant]
     Active Substance: SODIUM CHLORIDE
  21. CLONAZEPAM [Concomitant]
     Active Substance: CLONAZEPAM
  22. PREMARIN [Concomitant]
     Active Substance: ESTROGENS, CONJUGATED
  23. IPRATROPIUM BROMIDE [Concomitant]
     Active Substance: IPRATROPIUM BROMIDE
  24. AJOVY [Concomitant]
     Active Substance: FREMANEZUMAB-VFRM
  25. IPRATROPIUM BROMIDE AND ALBUTEROL SULFATE [Concomitant]
     Active Substance: ALBUTEROL SULFATE\IPRATROPIUM BROMIDE
  26. FLONASE ALLERGY RELIEF [Concomitant]
     Active Substance: FLUTICASONE PROPIONATE
  27. ELIQUIS [Concomitant]
     Active Substance: APIXABAN
  28. LIDOCAINE [Concomitant]
     Active Substance: LIDOCAINE
  29. METOPROLOL SUCCINATE [Concomitant]
     Active Substance: METOPROLOL SUCCINATE
  30. LEVOTHYROXINE SODIUM [Concomitant]
     Active Substance: LEVOTHYROXINE SODIUM
  31. GABAPENTIN [Concomitant]
     Active Substance: GABAPENTIN
  32. PREDNISONE [Concomitant]
     Active Substance: PREDNISONE
  33. NYSTATIN\TRIAMCINOLONE [Concomitant]
     Active Substance: NYSTATIN\TRIAMCINOLONE
  34. MOXIFLOXACIN [Concomitant]
     Active Substance: MOXIFLOXACIN
  35. BENADRYL ALLERGY [Concomitant]
     Active Substance: DIPHENHYDRAMINE HYDROCHLORIDE
  36. LIDOCAINE HYDROCHLORIDE [Concomitant]
     Active Substance: LIDOCAINE HYDROCHLORIDE
  37. DIPHENHYDRAMINE HYDROCHLORIDE [Concomitant]
     Active Substance: DIPHENHYDRAMINE HYDROCHLORIDE
  38. ONDANSETRON HYDROCHLORIDE [Concomitant]
     Active Substance: ONDANSETRON HYDROCHLORIDE
  39. HYDROMORPHONE HCL [Concomitant]
     Active Substance: HYDROMORPHONE HYDROCHLORIDE
  40. DICYCLOMINE HYDROCHLORIDE [Concomitant]
     Active Substance: DICYCLOMINE HYDROCHLORIDE
  41. MONTELUKAST SODIUM [Concomitant]
     Active Substance: MONTELUKAST SODIUM
  42. OMEPRAZOLE [Concomitant]
     Active Substance: OMEPRAZOLE
  43. SODIUM CHLORIDE [Concomitant]
     Active Substance: SODIUM CHLORIDE
  44. ROSUVASTATIN CALCIUM [Concomitant]
     Active Substance: ROSUVASTATIN CALCIUM
  45. UBRELVY [Concomitant]
     Active Substance: UBROGEPANT
  46. OXYCODONE [Concomitant]
     Active Substance: OXYCODONE
  47. PROCHLORPERAZINE MALEATE [Concomitant]
     Active Substance: PROCHLORPERAZINE MALEATE
  48. VITAMIN D3 [Concomitant]
     Active Substance: CHOLECALCIFEROL
  49. DIPHENHYDRAMINE [Concomitant]
     Active Substance: DIPHENHYDRAMINE
  50. Coricidin [Concomitant]
  51. NASACORT [Concomitant]
     Active Substance: TRIAMCINOLONE ACETONIDE
  52. NORTRIPTYLINE HYDROCHLORIDE [Concomitant]
     Active Substance: NORTRIPTYLINE HYDROCHLORIDE
  53. NARATRIPTAN HYDROCHLORIDE [Concomitant]
     Active Substance: NARATRIPTAN HYDROCHLORIDE
  54. PERCOCET [Concomitant]
     Active Substance: ACETAMINOPHEN\OXYCODONE HYDROCHLORIDE
  55. TOBRAMYCIN [Concomitant]
     Active Substance: TOBRAMYCIN
  56. GAMUNEX-C [Concomitant]
     Active Substance: HUMAN IMMUNOGLOBULIN G
  57. AIMOVIG [Concomitant]
     Active Substance: ERENUMAB-AOOE
  58. ZOFRAN [Concomitant]
     Active Substance: ONDANSETRON HYDROCHLORIDE
  59. DEXAMETHASONE [Concomitant]
     Active Substance: DEXAMETHASONE
  60. IMITREX [Concomitant]
     Active Substance: SUMATRIPTAN SUCCINATE
  61. LEVALBUTEROL [Concomitant]
     Active Substance: LEVALBUTEROL
  62. SYMBICORT [Concomitant]
     Active Substance: BUDESONIDE\FORMOTEROL FUMARATE DIHYDRATE
  63. ALBUTEROL [Concomitant]
     Active Substance: ALBUTEROL
  64. GENTAMICIN SULFATE [Concomitant]
     Active Substance: GENTAMICIN SULFATE
  65. ESCITALOPRAM [Concomitant]
     Active Substance: ESCITALOPRAM OXALATE
  66. MONTELUKAST [Concomitant]
     Active Substance: MONTELUKAST
  67. MAGNESIUM [Concomitant]
     Active Substance: MAGNESIUM
  68. EMGALITY [Concomitant]
     Active Substance: GALCANEZUMAB-GNLM
  69. FISH OIL [Concomitant]
     Active Substance: FISH OIL
  70. GENTAMICIN [Concomitant]
     Active Substance: GENTAMICIN
  71. AZITHROMYCIN DIHYDROCHLORIDE [Concomitant]
     Active Substance: AZITHROMYCIN DIHYDROCHLORIDE
  72. SIMVASTATIN [Concomitant]
     Active Substance: SIMVASTATIN
  73. BUDESONIDE [Concomitant]
     Active Substance: BUDESONIDE
  74. RIZATRIPTAN [Concomitant]
     Active Substance: RIZATRIPTAN
  75. ATROVENT [Concomitant]
     Active Substance: IPRATROPIUM BROMIDE
  76. CRANBERRY [Concomitant]
     Active Substance: CRANBERRY
  77. TRIAMCINOLONE [Concomitant]
     Active Substance: TRIAMCINOLONE
  78. BROVANA [Concomitant]
     Active Substance: ARFORMOTEROL TARTRATE
  79. AZITHROMYCIN [Concomitant]
     Active Substance: AZITHROMYCIN
  80. ESCITALOPRAM OXALATE [Concomitant]
     Active Substance: ESCITALOPRAM OXALATE
  81. TRIAMCINOLONE ACETONIDE [Concomitant]
     Active Substance: TRIAMCINOLONE ACETONIDE
  82. ALBUTEROL SULFATE [Concomitant]
     Active Substance: ALBUTEROL SULFATE
  83. DOXYCYCLINE [Concomitant]
     Active Substance: DOXYCYCLINE
  84. VITAMIN B2 [Concomitant]
     Active Substance: RIBOFLAVIN
  85. ALBUTEROL\IPRATROPIUM [Concomitant]
     Active Substance: ALBUTEROL\IPRATROPIUM
  86. DIPHENHYDRAMINE HYDROCHLORIDE [Concomitant]
     Active Substance: DIPHENHYDRAMINE HYDROCHLORIDE
  87. OXYCODONE AND ACETAMINOPHEN [Concomitant]
     Active Substance: ACETAMINOPHEN\OXYCODONE HYDROCHLORIDE
  88. VITAMIN B COMPLEX [Concomitant]
     Active Substance: CYANOCOBALAMIN\DEXPANTHENOL\NIACINAMIDE\PYRIDOXINE HYDROCHLORIDE\RIBOFLAVIN 5^-PHOSPHATE SODIUM\THIA
  89. CEPHALEXIN [Concomitant]
     Active Substance: CEPHALEXIN
  90. PREDNISOLONE ACETATE [Concomitant]
     Active Substance: PREDNISOLONE ACETATE
  91. ACETAMINOPHEN\HYDROCODONE [Concomitant]
     Active Substance: ACETAMINOPHEN\HYDROCODONE
  92. SODIUM CHLORIDE [Concomitant]
     Active Substance: SODIUM CHLORIDE

REACTIONS (55)
  - Respiratory tract infection viral [Unknown]
  - Pneumonia [Recovered/Resolved]
  - Pneumonia viral [Unknown]
  - Cataract [Unknown]
  - Sinus disorder [Unknown]
  - Seasonal allergy [Unknown]
  - Viral infection [Recovered/Resolved]
  - Candida infection [Unknown]
  - Urinary tract infection [Unknown]
  - Weight fluctuation [Unknown]
  - Oxygen saturation abnormal [Unknown]
  - Lung disorder [Unknown]
  - Body height decreased [Unknown]
  - Sinus congestion [Unknown]
  - Illness [Unknown]
  - Nasopharyngitis [Unknown]
  - Musculoskeletal discomfort [Unknown]
  - Concussion [Unknown]
  - Constipation [Unknown]
  - Intervertebral disc protrusion [Unknown]
  - Intervertebral disc compression [Unknown]
  - Back disorder [Unknown]
  - Drug hypersensitivity [Unknown]
  - Fall [Unknown]
  - Irritable bowel syndrome [Recovered/Resolved]
  - Weight decreased [Recovered/Resolved]
  - Productive cough [Recovered/Resolved]
  - Product use in unapproved indication [Unknown]
  - Incorrect drug administration rate [Unknown]
  - Inappropriate schedule of product administration [Unknown]
  - Hypersomnia [Unknown]
  - Gastrointestinal disorder [Unknown]
  - Gastroenteritis viral [Unknown]
  - Ligament sprain [Unknown]
  - Upper respiratory tract infection [Unknown]
  - Sinusitis [Recovered/Resolved]
  - Feeling abnormal [Recovered/Resolved]
  - Asthma [Recovered/Resolved]
  - Abdominal discomfort [Unknown]
  - Pain [Unknown]
  - Conjunctivitis [Unknown]
  - Influenza like illness [Unknown]
  - Blood pressure increased [Unknown]
  - Cough [Unknown]
  - Muscle twitching [Unknown]
  - Oxygen saturation decreased [Unknown]
  - Hypertension [Unknown]
  - Back pain [Unknown]
  - Arthralgia [Unknown]
  - Pain in extremity [Unknown]
  - Hypotension [Unknown]
  - Dyspnoea [Unknown]
  - Pyrexia [Unknown]
  - Headache [Recovered/Resolved]
  - Migraine [Recovered/Resolved]

NARRATIVE: CASE EVENT DATE: 20201230
